FAERS Safety Report 14919463 (Version 1)
Quarter: 2018Q2

REPORT INFORMATION
  Report Type: Spontaneous
  Country: US (occurrence: US)
  Receive Date: 20180502
  Receipt Date: 20180502
  Transmission Date: 20180711
  Serious: Yes (Hospitalization)
  Sender: FDA-Public Use
  Company Number: None

PATIENT
  Age: 66 Year
  Sex: Female
  Weight: 54.88 kg

DRUGS (13)
  1. DICYCLOMINE [Concomitant]
     Active Substance: DICYCLOMINE HYDROCHLORIDE
  2. PERCOCET [Concomitant]
     Active Substance: ACETAMINOPHEN\OXYCODONE HYDROCHLORIDE
  3. SULFAMETHOXAZOLE-TRIMETHOPRIM [Concomitant]
     Active Substance: SULFAMETHOXAZOLE\TRIMETHOPRIM
  4. HARVONI [Suspect]
     Active Substance: LEDIPASVIR\SOFOSBUVIR
     Indication: HEPATITIS C
     Dosage: ?          OTHER DOSE: 90MG/400MG;?
     Route: 048
     Dates: start: 20170517, end: 20171120
  5. FLUTICASONE. [Concomitant]
     Active Substance: FLUTICASONE
  6. ONDANSETRON [Concomitant]
     Active Substance: ONDANSETRON
  7. ASCORBIC ACID. [Concomitant]
     Active Substance: ASCORBIC ACID
  8. DEXTROMETHORPHAN-GUAIFENESIN [Concomitant]
     Active Substance: DEXTROMETHORPHAN\GUAIFENESIN
  9. PHENYLEPH-CPM-DM-APAP [Concomitant]
  10. CYCLOBENZAPINE [Concomitant]
  11. THIAMINE. [Concomitant]
     Active Substance: THIAMINE
  12. AMLODIPINE [Concomitant]
     Active Substance: AMLODIPINE BESYLATE
  13. NAPROXEN SODIUM. [Concomitant]
     Active Substance: NAPROXEN SODIUM

REACTIONS (1)
  - Gout [None]

NARRATIVE: CASE EVENT DATE: 20170617
